FAERS Safety Report 16569241 (Version 4)
Quarter: 2019Q3

REPORT INFORMATION
  Report Type: Report from Study
  Country: JP (occurrence: JP)
  Receive Date: 20190714
  Receipt Date: 20190906
  Transmission Date: 20191004
  Serious: Yes (Death)
  Sender: FDA-Public Use
  Company Number: JP-AMGEN-JPNCT2019112307

PATIENT
  Age: 70 Year
  Sex: Male

DRUGS (1)
  1. ROMIPLOSTIM [Suspect]
     Active Substance: ROMIPLOSTIM
     Indication: IMMUNE THROMBOCYTOPENIC PURPURA
     Dosage: 180 MICROGRAM, QWK
     Route: 058
     Dates: start: 20141217, end: 20150727

REACTIONS (2)
  - Jaundice [Fatal]
  - Peritonitis [Fatal]

NARRATIVE: CASE EVENT DATE: 20190623
